FAERS Safety Report 18647958 (Version 1)
Quarter: 2020Q4

REPORT INFORMATION
  Report Type: Spontaneous
  Country: US (occurrence: US)
  Receive Date: 20201221
  Receipt Date: 20201221
  Transmission Date: 20210114
  Serious: Yes (Hospitalization)
  Sender: FDA-Public Use
  Company Number: None

PATIENT
  Age: 69 Year
  Sex: Female

DRUGS (2)
  1. MEKINIST [Suspect]
     Active Substance: TRAMETINIB DIMETHYL SULFOXIDE
     Route: 048
     Dates: start: 20201201, end: 20201215
  2. TAFINLAR [Suspect]
     Active Substance: DABRAFENIB MESYLATE

REACTIONS (3)
  - Pyrexia [None]
  - Motor dysfunction [None]
  - Red blood cell count decreased [None]

NARRATIVE: CASE EVENT DATE: 20201207
